FAERS Safety Report 22059184 (Version 1)
Quarter: 2023Q1

REPORT INFORMATION
  Report Type: Spontaneous
  Country: PL (occurrence: PL)
  Receive Date: 20230303
  Receipt Date: 20230303
  Transmission Date: 20230417
  Serious: Yes (Hospitalization, Other)
  Sender: FDA-Public Use
  Company Number: PL-FreseniusKabi-FK202302742

PATIENT
  Age: 78 Year
  Sex: Female

DRUGS (1)
  1. PACLITAXEL [Suspect]
     Active Substance: PACLITAXEL
     Indication: Breast cancer
     Dosage: 36 INFUSIONS IN TOTAL
     Dates: start: 202105, end: 202202

REACTIONS (1)
  - Scleroderma-like reaction [Recovering/Resolving]
